FAERS Safety Report 8572053-0 (Version None)
Quarter: 2012Q3

REPORT INFORMATION
  Report Type: 
  Country: None (occurrence: None)
  Receive Date: 20120724
  Receipt Date: 20120615
  Transmission Date: 20120928
  Serious: Yes (Hospitalization)
  Sender: FDA-Public Use
  Company Number: FRA-CLT-2012040

PATIENT
  Age: 17 Year
  Sex: Male

DRUGS (7)
  1. CYSTADANE [Suspect]
     Indication: VITAMIN B12 DEFICIENCY
     Dosage: 10 G EVERY DAY ORAL
     Route: 048
  2. LEUCOVORIN CALCIUM [Concomitant]
  3. L-CARNITINE [Concomitant]
  4. VITAMIN B-12 [Concomitant]
  5. CYSTADANE [Suspect]
     Indication: VITAMIN B12 DEFICIENCY
     Dosage: 400 MG EVERY DAY, 10 G EVERY DAY
     Dates: start: 19980810
  6. CYSTADANE [Suspect]
     Indication: VITAMIN B12 DEFICIENCY
     Dosage: 400 MG EVERY DAY, 10 G EVERY DAY
     Dates: start: 20010401
  7. VITAMIN B-12 [Concomitant]

REACTIONS (4)
  - PNEUMOCOCCAL SEPSIS [None]
  - BACK PAIN [None]
  - MEASLES [None]
  - BLOOD HOMOCYSTEINE INCREASED [None]
